FAERS Safety Report 9220715 (Version 2)
Quarter: 2014Q1

REPORT INFORMATION
  Report Type: Spontaneous
  Country: JP (occurrence: JP)
  Receive Date: 20130409
  Receipt Date: 20140210
  Transmission Date: 20141002
  Serious: Yes (Other)
  Sender: FDA-Public Use
  Company Number: JP-009507513-1301JPN013899

PATIENT
  Age: 61 Year
  Sex: Male

DRUGS (3)
  1. JANUVIA TABLETS 50MG [Suspect]
     Indication: TYPE 2 DIABETES MELLITUS
     Dosage: 50 MG, DAILY
     Route: 048
     Dates: start: 201105, end: 20110828
  2. AMARYL [Concomitant]
     Dosage: DIVIDED DOSE FREQUENCY
     Route: 065
  3. METFORMIN HYDROCHLORIDE [Concomitant]
     Dosage: 250MG6T AND 1500MG DAILY, DIVIDED DOSE FREQUENCY UNKNOWN
     Route: 048

REACTIONS (2)
  - Rheumatoid arthritis [Recovering/Resolving]
  - Rheumatoid arthritis [Unknown]
